FAERS Safety Report 24696194 (Version 1)
Quarter: 2024Q4

REPORT INFORMATION
  Report Type: Spontaneous
  Country: US (occurrence: US)
  Receive Date: 20241204
  Receipt Date: 20241204
  Transmission Date: 20250114
  Serious: Yes (Other)
  Sender: AUROBINDO
  Company Number: US-MLMSERVICE-20240603-PI085625-00206-1

PATIENT
  Age: 17 Year
  Sex: Male

DRUGS (6)
  1. LORAZEPAM [Suspect]
     Active Substance: LORAZEPAM
     Indication: Catatonia
     Dosage: 3.5 MILLIGRAM, 3 TIMES A DAY (3.5 MG TID)
     Route: 042
  2. LORAZEPAM [Suspect]
     Active Substance: LORAZEPAM
     Dosage: 1 MILLIGRAM, 3 TIMES A DAY (1 MG TID)
     Route: 042
  3. LORAZEPAM [Suspect]
     Active Substance: LORAZEPAM
     Dosage: 2.5 MILLIGRAM, 3 TIMES A DAY (2.5 MG TID)
     Route: 042
  4. LORAZEPAM [Suspect]
     Active Substance: LORAZEPAM
     Dosage: 0.5 MILLIGRAM, 3 TIMES A DAY (0.5 MG THREE TIMES DAILY (TID)
     Route: 042
  5. MEMANTINE [Concomitant]
     Active Substance: MEMANTINE
     Indication: Catatonia
     Dosage: UNK
     Route: 065
  6. NORTRIPTYLINE [Concomitant]
     Active Substance: NORTRIPTYLINE
     Indication: Catatonia
     Dosage: UNK
     Route: 065

REACTIONS (1)
  - Cognitive disorder [Recovering/Resolving]
